FAERS Safety Report 18506123 (Version 1)
Quarter: 2020Q4

REPORT INFORMATION
  Report Type: Not Available
  Country: US (occurrence: US)
  Receive Date: 20201116
  Receipt Date: 20201116
  Transmission Date: 20210114
  Serious: Yes (Hospitalization, Other)
  Sender: FDA-Public Use
  Company Number: US-C B FLEET CO INC-202010-US-003870

PATIENT
  Sex: Male

DRUGS (1)
  1. BACID PROBIOTIC, CAPSULES [Suspect]
     Active Substance: LACTOBACILLUS ACIDOPHILUS
     Indication: PRODUCT USED FOR UNKNOWN INDICATION
     Dosage: FIRST DOSE OF TWO CAPSULES AT 3:30PM. SECOND DOSE FOLLOWING MORNING.
     Route: 048
     Dates: start: 20201017, end: 20201018

REACTIONS (3)
  - Cellulitis [Unknown]
  - Hypersensitivity [Recovered/Resolved]
  - Product used for unknown indication [None]

NARRATIVE: CASE EVENT DATE: 20201018
